FAERS Safety Report 6034490-8 (Version None)
Quarter: 2009Q1

REPORT INFORMATION
  Report Type: 
  Country: None (occurrence: None)
  Receive Date: 20090108
  Receipt Date: 20081229
  Transmission Date: 20090719
  Serious: Yes (Hospitalization)
  Sender: FDA-Public Use
  Company Number: 2009SP000035

PATIENT
  Age: 48 Year
  Sex: Male
  Weight: 113.3993 kg

DRUGS (3)
  1. PEG-INTRON [Suspect]
     Indication: HEPATITIS C
     Dosage: SC
     Route: 058
     Dates: start: 20080627
  2. RIBAVIRIN [Suspect]
     Indication: HEPATITIS C
     Dosage: PO
     Route: 048
     Dates: start: 20080627
  3. LOTREL [Concomitant]

REACTIONS (15)
  - ANOREXIA [None]
  - ASTHENIA [None]
  - DEHYDRATION [None]
  - DIARRHOEA [None]
  - EXTRASYSTOLES [None]
  - GASTRIC DISORDER [None]
  - HAEMATOCHEZIA [None]
  - HAEMORRHOIDS [None]
  - HYPERHIDROSIS [None]
  - INJECTION SITE RASH [None]
  - INJECTION SITE SWELLING [None]
  - NAUSEA [None]
  - POLLAKIURIA [None]
  - PYREXIA [None]
  - WEIGHT DECREASED [None]
